FAERS Safety Report 25710839 (Version 1)
Quarter: 2025Q3

REPORT INFORMATION
  Report Type: Spontaneous
  Country: PR (occurrence: US)
  Receive Date: 20250821
  Receipt Date: 20250821
  Transmission Date: 20251020
  Serious: No
  Sender: SANOFI AVENTIS
  Company Number: PR-SA-2025SA000866

PATIENT
  Age: 68 Year
  Sex: Female

DRUGS (2)
  1. DUPIXENT [Suspect]
     Active Substance: DUPILUMAB
     Indication: Neurodermatitis
     Dosage: 300 MG, QOW
     Route: 058
     Dates: start: 20240808
  2. LYRICA [Suspect]
     Active Substance: PREGABALIN

REACTIONS (3)
  - Aspartate aminotransferase increased [Unknown]
  - Shoulder operation [Unknown]
  - Drug hypersensitivity [Unknown]
